FAERS Safety Report 11975840 (Version 9)
Quarter: 2017Q3

REPORT INFORMATION
  Report Type: Report from Study
  Country: CA (occurrence: CA)
  Receive Date: 20160129
  Receipt Date: 20170816
  Transmission Date: 20171127
  Serious: Yes (Hospitalization, Other)
  Sender: FDA-Public Use
  Company Number: CA-ROCHE-1662469

PATIENT
  Age: 68 Year
  Sex: Male
  Weight: 85 kg

DRUGS (12)
  1. BISOPROLOL [Concomitant]
     Active Substance: BISOPROLOL
  2. FE GLUCONATE [Concomitant]
  3. ESBRIET [Suspect]
     Active Substance: PIRFENIDONE
     Route: 048
     Dates: start: 20151107
  4. METFORMIN [Concomitant]
     Active Substance: METFORMIN HYDROCHLORIDE
  5. ASA [Concomitant]
     Active Substance: ASPIRIN
  6. BRILINTA [Concomitant]
     Active Substance: TICAGRELOR
  7. ESBRIET [Suspect]
     Active Substance: PIRFENIDONE
     Route: 048
     Dates: start: 20151114, end: 201612
  8. COVERSYL [Concomitant]
     Active Substance: PERINDOPRIL
  9. FUROSEMIDE. [Concomitant]
     Active Substance: FUROSEMIDE
  10. ATORVASTATIN [Concomitant]
     Active Substance: ATORVASTATIN
  11. ESBRIET [Suspect]
     Active Substance: PIRFENIDONE
     Indication: IDIOPATHIC PULMONARY FIBROSIS
     Route: 048
     Dates: start: 20151031
  12. TECTA [Concomitant]
     Active Substance: PANTOPRAZOLE MAGNESIUM

REACTIONS (18)
  - Dyspepsia [Unknown]
  - Cough [Not Recovered/Not Resolved]
  - Oxygen saturation decreased [Not Recovered/Not Resolved]
  - Muscular weakness [Recovering/Resolving]
  - Fatigue [Unknown]
  - Blood pressure increased [Not Recovered/Not Resolved]
  - Lung disorder [Recovered/Resolved]
  - Heart rate increased [Recovering/Resolving]
  - Nausea [Unknown]
  - Nasopharyngitis [Unknown]
  - Rash [Recovering/Resolving]
  - Breath sounds abnormal [Not Recovered/Not Resolved]
  - Cardiac failure congestive [Unknown]
  - Vomiting [Unknown]
  - Dysphagia [Unknown]
  - Malaise [Not Recovered/Not Resolved]
  - Muscle fatigue [Recovering/Resolving]
  - Pulmonary function test decreased [Unknown]

NARRATIVE: CASE EVENT DATE: 20151115
